FAERS Safety Report 9058729 (Version 1)
Quarter: 2013Q1

REPORT INFORMATION
  Report Type: Spontaneous
  Country: US (occurrence: US)
  Receive Date: 20130204
  Receipt Date: 20130204
  Transmission Date: 20140127
  Serious: Yes (Hospitalization)
  Sender: FDA-Public Use
  Company Number: US-BAYER-2013-013606

PATIENT
  Age: 26 Year
  Sex: Female

DRUGS (3)
  1. YASMIN [Suspect]
  2. MAGNESIUM SULFATE [Concomitant]
  3. RHOGAM [Concomitant]
     Dosage: UNK
     Dates: start: 20060502

REACTIONS (1)
  - Pulmonary embolism [None]
